FAERS Safety Report 12693304 (Version 1)
Quarter: 2016Q3

REPORT INFORMATION
  Report Type: Spontaneous
  Country: PT (occurrence: DE)
  Receive Date: 20160829
  Receipt Date: 20160829
  Transmission Date: 20161109
  Serious: Yes (Hospitalization)
  Sender: FDA-Public Use
  Company Number: PT-SUNOVION-2016SUN002069

PATIENT

DRUGS (2)
  1. ZEBINIX [Suspect]
     Active Substance: ESLICARBAZEPINE ACETATE
     Dosage: 1200 MG, DAILY
     Route: 065
     Dates: start: 2016
  2. ZEBINIX [Suspect]
     Active Substance: ESLICARBAZEPINE ACETATE
     Indication: EPILEPSY
     Dosage: 800 MG, DAILY
     Route: 065
     Dates: start: 201604, end: 2016

REACTIONS (3)
  - Drug dose titration not performed [Unknown]
  - Seizure [Unknown]
  - Nausea [Unknown]

NARRATIVE: CASE EVENT DATE: 201604
